FAERS Safety Report 6756696-2 (Version None)
Quarter: 2010Q2

REPORT INFORMATION
  Report Type: 
  Country: None (occurrence: None)
  Receive Date: 20100603
  Receipt Date: 20100603
  Transmission Date: 20101027
  Serious: No
  Sender: FDA-Public Use
  Company Number: None

PATIENT
  Sex: Female
  Weight: 54.8852 kg

DRUGS (2)
  1. DIFLUCAN [Suspect]
     Indication: DENTAL DISORDER PROPHYLAXIS
     Dosage: 150 MG ONCE QD PO
     Route: 048
     Dates: start: 20050101
  2. DIFLUCAN [Suspect]
     Indication: FUNGAL INFECTION
     Dosage: 150 MG ONCE QD PO
     Route: 048
     Dates: start: 20050101

REACTIONS (3)
  - ABDOMINAL PAIN UPPER [None]
  - DRUG INEFFECTIVE [None]
  - HEADACHE [None]
